FAERS Safety Report 7939277-4 (Version None)
Quarter: 2011Q4

REPORT INFORMATION
  Report Type: 
  Country: None (occurrence: None)
  Receive Date: 20111125
  Receipt Date: 20111116
  Transmission Date: 20120403
  Serious: Yes (Other)
  Sender: FDA-Public Use
  Company Number: PHHY2011US87899

PATIENT
  Sex: Male

DRUGS (1)
  1. BUFFERIN [Suspect]
     Indication: HEADACHE
     Dosage: UNK
     Route: 048

REACTIONS (1)
  - RESPIRATORY TRACT INFECTION [None]
